FAERS Safety Report 18730211 (Version 2)
Quarter: 2021Q1

REPORT INFORMATION
  Report Type: Spontaneous
  Country: US (occurrence: US)
  Receive Date: 20210112
  Receipt Date: 20210202
  Transmission Date: 20210419
  Serious: Yes (Death, Life-Threatening, Hospitalization, Other)
  Sender: FDA-Public Use
  Company Number: US-AMGEN-USASP2021000133

PATIENT
  Age: 65 Year
  Sex: Female

DRUGS (3)
  1. SODIUM THIOSULFATE [Concomitant]
     Active Substance: SODIUM THIOSULFATE
     Dosage: UNK
  2. SEVELAMER [Concomitant]
     Active Substance: SEVELAMER
     Dosage: UNK
  3. SENSIPAR [Suspect]
     Active Substance: CINACALCET HYDROCHLORIDE
     Indication: CALCIPHYLAXIS
     Dosage: UNK
     Route: 065

REACTIONS (15)
  - Swelling face [Unknown]
  - Brain herniation [Unknown]
  - Off label use [Unknown]
  - Haematemesis [Unknown]
  - Cerebral haematoma [Unknown]
  - Abdominal pain [Unknown]
  - Hypoxia [Unknown]
  - Coronary artery embolism [Unknown]
  - Mitral valve calcification [Unknown]
  - Cardiac arrest [Fatal]
  - Leukocytosis [Unknown]
  - Myocardial necrosis [Unknown]
  - Pneumonia aspiration [Unknown]
  - Ischaemic stroke [Unknown]
  - Pulseless electrical activity [Unknown]
